FAERS Safety Report 7640759-3 (Version None)
Quarter: 2011Q3

REPORT INFORMATION
  Report Type: 
  Country: None (occurrence: None)
  Receive Date: 20110727
  Receipt Date: 20110727
  Transmission Date: 20111222
  Serious: Yes (Hospitalization, Other)
  Sender: FDA-Public Use
  Company Number: None

PATIENT
  Age: 16 Year
  Sex: Male

DRUGS (1)
  1. UP + UP ALCOHOL SWABS [Suspect]
     Indication: DEVICE THERAPY
     Dosage: UNKNOWN PRIOR TO
     Dates: start: 20110308

REACTIONS (1)
  - BACTERIAL INFECTION [None]
